FAERS Safety Report 4707686-2 (Version None)
Quarter: 2005Q2

REPORT INFORMATION
  Report Type: 
  Country: None (occurrence: None)
  Receive Date: 20050629
  Receipt Date: 20050519
  Transmission Date: 20051028
  Serious: No
  Sender: FDA-Public Use
  Company Number: 05P-163-0300886-00

PATIENT
  Sex: Female
  Weight: 43.0917 kg

DRUGS (2)
  1. HUMIRA [Suspect]
     Indication: RHEUMATOID ARTHRITIS
     Dosage: 40 MG, 1 IN 2 WK, SUBCUTANEOUS
     Route: 058
     Dates: start: 20040101
  2. TRAMADOL HCL [Concomitant]

REACTIONS (2)
  - BLADDER PAIN [None]
  - WEIGHT DECREASED [None]
